FAERS Safety Report 5239799-3 (Version None)
Quarter: 2007Q1

REPORT INFORMATION
  Report Type: 
  Country: None (occurrence: None)
  Receive Date: 20070216
  Receipt Date: 20070208
  Transmission Date: 20070707
  Serious: Yes (Other)
  Sender: FDA-Public Use
  Company Number: JP-ELI_LILLY_AND_COMPANY-JP200611002397

PATIENT
  Age: 72 Year
  Sex: Female

DRUGS (8)
  1. HUMATROPE [Suspect]
     Indication: GROWTH HORMONE DEFICIENCY
     Dosage: 0.2 MG, DAILY (1/D)
     Route: 058
     Dates: start: 20060912, end: 20060101
  2. HUMATROPE [Suspect]
     Dosage: 0.1 MG, DAILY (1/D)
     Route: 058
     Dates: start: 20060101, end: 20070101
  3. HUMATROPE [Suspect]
     Dosage: 0.1 MG, QOD
     Route: 058
     Dates: start: 20070101
  4. CORTRIL [Concomitant]
     Indication: ADRENAL INSUFFICIENCY
     Dosage: 25 MG, DAILY (1/D)
     Route: 048
     Dates: start: 20030101
  5. THYRADIN-S [Concomitant]
     Indication: SECONDARY HYPOTHYROIDISM
     Dosage: 75 UG, DAILY (1/D)
     Route: 048
     Dates: start: 20030101
  6. MEVALOTIN                               /JPN/ [Concomitant]
     Indication: HYPERCHOLESTEROLAEMIA
     Dosage: 10 MG, DAILY (1/D)
     Route: 048
  7. BLOPRESS                                /GFR/ [Concomitant]
     Indication: ESSENTIAL HYPERTENSION
     Dosage: 4 MG, DAILY (1/D)
     Route: 048
  8. NORVASC [Concomitant]
     Indication: ESSENTIAL HYPERTENSION
     Dosage: 5 MG, DAILY (1/D)
     Route: 048

REACTIONS (2)
  - GENERALISED OEDEMA [None]
  - PITUITARY TUMOUR BENIGN [None]
